FAERS Safety Report 6667300-6 (Version None)
Quarter: 2010Q2

REPORT INFORMATION
  Report Type: 
  Country: None (occurrence: None)
  Receive Date: 20100401
  Receipt Date: 20100401
  Transmission Date: 20101027
  Serious: Yes (Death, Life-Threatening, Hospitalization)
  Sender: FDA-Public Use
  Company Number: None

PATIENT
  Age: 56 Year
  Sex: Female

DRUGS (13)
  1. PROTAMINE SULFATE [Suspect]
     Indication: COAGULATION TIME PROLONGED
     Dosage: 300MG ONCE IV BOLUS
     Route: 040
     Dates: start: 20100122, end: 20100122
  2. ESCITALOPRAM [Concomitant]
  3. LEVALBUTEROL HCL [Concomitant]
  4. ACETAMINOPHEN AND HYDROCODONE BITARTRATE [Concomitant]
  5. GABAPENTIN [Suspect]
  6. WARFARIN SODIUM [Concomitant]
  7. MAGNESIUM [Suspect]
  8. CHOLECALCIFEROL [Suspect]
  9. IBUPROFEN [Concomitant]
  10. FEXOFENADINE [Concomitant]
  11. MULTI-VITAMIN [Concomitant]
  12. LORAZEPAM [Concomitant]
  13. OSCAL ULTRA 60 + D [Concomitant]

REACTIONS (18)
  - ACIDOSIS [None]
  - ADHESION [None]
  - BRADYCARDIA [None]
  - BRAIN HERNIATION [None]
  - CARDIAC ARREST [None]
  - CEREBRAL DISORDER [None]
  - COMPLICATIONS OF TRANSPLANTED LUNG [None]
  - CONTINUOUS HAEMODIAFILTRATION [None]
  - HAEMATEMESIS [None]
  - HYPOTENSION [None]
  - HYPOXIA [None]
  - LUNG DISORDER [None]
  - NO THERAPEUTIC RESPONSE [None]
  - PROCEDURAL HYPOTENSION [None]
  - PULMONARY OEDEMA [None]
  - PUPILLARY DISORDER [None]
  - SHOCK [None]
  - TACHYCARDIA [None]
